FAERS Safety Report 10492673 (Version 1)
Quarter: 2014Q4

REPORT INFORMATION
  Report Type: Spontaneous
  Country: US (occurrence: US)
  Receive Date: 20141002
  Receipt Date: 20141002
  Transmission Date: 20150528
  Serious: No
  Sender: FDA-Public Use
  Company Number: US-GLAXOSMITHKLINE-A1074024A

PATIENT
  Age: 52 Year
  Sex: Female

DRUGS (12)
  1. CIPRO [Concomitant]
     Active Substance: CIPROFLOXACIN HYDROCHLORIDE
     Dates: start: 20140507, end: 20140516
  2. PROVENTIL [Concomitant]
     Active Substance: ALBUTEROL
  3. CARVEDILOL. [Concomitant]
     Active Substance: CARVEDILOL
  4. NEXIUM [Concomitant]
     Active Substance: ESOMEPRAZOLE MAGNESIUM
  5. ALLOPURINOL. [Concomitant]
     Active Substance: ALLOPURINOL
  6. MAXALT [Concomitant]
     Active Substance: RIZATRIPTAN BENZOATE
  7. UNKNOWN MEDICATION [Concomitant]
     Active Substance: UNSPECIFIED INGREDIENT
  8. LASIX [Concomitant]
     Active Substance: FUROSEMIDE
  9. CYCLOBENZAPRINE [Concomitant]
     Active Substance: CYCLOBENZAPRINE
  10. ADVAIR HFA [Suspect]
     Active Substance: FLUTICASONE PROPIONATE\SALMETEROL XINAFOATE
     Indication: ASTHMA
     Dosage: 1PUFF TWICE PER DAY
     Route: 055
  11. POTASSIUM [Concomitant]
     Active Substance: POTASSIUM
  12. LEVOTHYROXINE [Concomitant]
     Active Substance: LEVOTHYROXINE

REACTIONS (6)
  - Blood pressure fluctuation [Unknown]
  - Product quality issue [Unknown]
  - Atypical pneumonia [Unknown]
  - Overdose [Unknown]
  - Asthma [Unknown]
  - Blood glucose increased [Unknown]

NARRATIVE: CASE EVENT DATE: 201405
